FAERS Safety Report 7030639-9 (Version None)
Quarter: 2010Q4

REPORT INFORMATION
  Report Type: 
  Country: None (occurrence: None)
  Receive Date: 20101001
  Receipt Date: 20100923
  Transmission Date: 20110411
  Serious: Yes (Hospitalization, Disabling)
  Sender: FDA-Public Use
  Company Number: 2010SP004876

PATIENT
  Age: 28 Year
  Sex: Female
  Weight: 94.3482 kg

DRUGS (3)
  1. NUVARING [Suspect]
     Indication: CONTRACEPTION
     Dates: start: 20030101, end: 20050101
  2. NUVARING [Suspect]
     Indication: CONTRACEPTION
     Dates: start: 20080501, end: 20080801
  3. NUVARING [Suspect]

REACTIONS (5)
  - DEEP VEIN THROMBOSIS [None]
  - HYPERTENSION [None]
  - MIGRAINE [None]
  - PSORIASIS [None]
  - PULMONARY EMBOLISM [None]
